FAERS Safety Report 14969838 (Version 1)
Quarter: 2018Q2

REPORT INFORMATION
  Report Type: Spontaneous
  Country: US (occurrence: US)
  Receive Date: 20180512
  Receipt Date: 20180512
  Transmission Date: 20180711
  Serious: Yes (Disabling)
  Sender: FDA-Public Use
  Company Number: None

PATIENT
  Age: 59 Year
  Sex: Male
  Weight: 114.75 kg

DRUGS (18)
  1. DEXTRAN [Concomitant]
     Active Substance: DEXTRAN
  2. TERAZOSIN HCL [Suspect]
     Active Substance: TERAZOSIN HYDROCHLORIDE
     Indication: PROSTATIC DISORDER
     Dosage: ?          QUANTITY:90 CAPSULE(S);?
     Route: 048
  3. CHOLECALCIFEROL [Concomitant]
     Active Substance: CHOLECALCIFEROL
  4. ROSUVASTATIN. [Concomitant]
     Active Substance: ROSUVASTATIN
  5. ATENOLOL. [Concomitant]
     Active Substance: ATENOLOL
  6. MIRABEGRON [Concomitant]
     Active Substance: MIRABEGRON
  7. TEA [Concomitant]
     Active Substance: TEA LEAF
  8. VITAMIN D [Concomitant]
     Active Substance: CHOLECALCIFEROL
  9. CLINDAMYCIN. [Concomitant]
     Active Substance: CLINDAMYCIN
  10. AZELASTINE. [Concomitant]
     Active Substance: AZELASTINE HYDROCHLORIDE
  11. FLOMAX [Suspect]
     Active Substance: TAMSULOSIN HYDROCHLORIDE
     Indication: HYPERTONIC BLADDER
     Route: 048
  12. TERAZOSIN HCL [Suspect]
     Active Substance: TERAZOSIN HYDROCHLORIDE
     Indication: BLOOD PRESSURE MEASUREMENT
     Dosage: ?          QUANTITY:90 CAPSULE(S);?
     Route: 048
  13. LISINOPRIL. [Concomitant]
     Active Substance: LISINOPRIL
  14. OMEPRAZOLE. [Concomitant]
     Active Substance: OMEPRAZOLE
  15. CHLORHEXIDINE [Concomitant]
     Active Substance: CHLORHEXIDINE
  16. ASPIRIN. [Concomitant]
     Active Substance: ASPIRIN
  17. FLUTICASONE. [Concomitant]
     Active Substance: FLUTICASONE
  18. CARBOMETHYLCELLULOSE [Concomitant]

REACTIONS (3)
  - Arthralgia [None]
  - Micturition urgency [None]
  - Musculoskeletal discomfort [None]

NARRATIVE: CASE EVENT DATE: 20160101
